FAERS Safety Report 5523818-0 (Version None)
Quarter: 2007Q4

REPORT INFORMATION
  Report Type: 
  Country: None (occurrence: None)
  Receive Date: 20071119
  Receipt Date: 20071105
  Transmission Date: 20080405
  Serious: Yes (Death)
  Sender: FDA-Public Use
  Company Number: 2007P1000695

PATIENT
  Age: 1 Year
  Sex: Female

DRUGS (8)
  1. BUSULFAN (BUSULFAN) [Suspect]
     Indication: STEM CELL TRANSPLANT
     Dosage: 2.8 ML; QD; IV, 4.0 ML; QD; IV
     Route: 042
     Dates: end: 20070209
  2. BUSULFAN (BUSULFAN) [Suspect]
     Indication: STEM CELL TRANSPLANT
     Dosage: 2.8 ML; QD; IV, 4.0 ML; QD; IV
     Route: 042
     Dates: start: 20070206
  3. ETOPOSIDE [Concomitant]
  4. CYCLOPHOSPHAMIDE [Concomitant]
  5. CLONAEPAM [Concomitant]
  6. METHOTREXATE [Concomitant]
  7. TARCOLIMUS [Concomitant]
  8. CYCLOSPORINE [Concomitant]

REACTIONS (3)
  - OBLITERATIVE BRONCHIOLITIS [None]
  - RESPIRATORY FAILURE [None]
  - THROMBOTIC MICROANGIOPATHY [None]
